FAERS Safety Report 4871033-6 (Version None)
Quarter: 2005Q4

REPORT INFORMATION
  Report Type: 
  Country: None (occurrence: None)
  Receive Date: 20051115
  Receipt Date: 20050921
  Transmission Date: 20060501
  Serious: Yes (Hospitalization)
  Sender: FDA-Public Use
  Company Number: 407367

PATIENT
  Age: 47 Year
  Sex: Male
  Weight: 113.4 kg

DRUGS (2)
  1. PEGASYS [Suspect]
     Indication: HEPATITIS C
     Dosage: 1 PER WEEK SUBCUTANEOUS
     Route: 058
     Dates: start: 20040428, end: 20050518
  2. COPEGUS [Concomitant]

REACTIONS (1)
  - CELLULITIS [None]
